FAERS Safety Report 7831295-X (Version None)
Quarter: 2011Q4

REPORT INFORMATION
  Report Type: 
  Country: None (occurrence: None)
  Receive Date: 20111021
  Receipt Date: 20111018
  Transmission Date: 20120403
  Serious: Yes (Death)
  Sender: FDA-Public Use
  Company Number: GB-ROCHE-1005178

PATIENT
  Sex: Female

DRUGS (2)
  1. METHOTREXATE [Concomitant]
  2. MABTHERA [Suspect]
     Indication: RHEUMATOID ARTHRITIS
     Dates: start: 20080611

REACTIONS (5)
  - CORONARY ARTERY THROMBOSIS [None]
  - MYOCARDIAL RUPTURE [None]
  - ACUTE MYOCARDIAL INFARCTION [None]
  - ARTERIOSCLEROSIS CORONARY ARTERY [None]
  - HYPERTENSIVE HEART DISEASE [None]
